FAERS Safety Report 11993377 (Version 2)
Quarter: 2016Q1

REPORT INFORMATION
  Report Type: Spontaneous
  Country: PL (occurrence: PL)
  Receive Date: 20160203
  Receipt Date: 20160204
  Transmission Date: 20160526
  Serious: Yes (Hospitalization)
  Sender: FDA-Public Use
  Company Number: PL-TEVA-629054ACC

PATIENT
  Age: 56 Year
  Sex: Male
  Weight: 96 kg

DRUGS (6)
  1. VANCOMYCINE [Concomitant]
     Active Substance: VANCOMYCIN
  2. LEVOXA [Concomitant]
     Active Substance: LEVOFLOXACIN
  3. PACLITAXEL. [Suspect]
     Active Substance: PACLITAXEL
     Route: 042
     Dates: start: 20150121, end: 20150126
  4. DOPAMINE [Concomitant]
     Active Substance: DOPAMINE\DOPAMINE HYDROCHLORIDE
  5. DOBUTREX [Concomitant]
     Active Substance: DOBUTAMINE HYDROCHLORIDE
  6. IFOSFAMID [Suspect]
     Active Substance: IFOSFAMIDE
     Route: 042
     Dates: start: 20150121, end: 20150126

REACTIONS (3)
  - Blood pressure decreased [Recovered/Resolved]
  - Somnolence [Recovered/Resolved]
  - Diarrhoea [Recovered/Resolved]

NARRATIVE: CASE EVENT DATE: 20150130
